FAERS Safety Report 5529891-8 (Version None)
Quarter: 2007Q4

REPORT INFORMATION
  Report Type: 
  Country: None (occurrence: None)
  Receive Date: 20071129
  Receipt Date: 20071031
  Transmission Date: 20080405
  Serious: Yes (Hospitalization, Other)
  Sender: FDA-Public Use
  Company Number: GB-BOEHRINGER INGELHEIM PHARMACEUTICALS, INC.-2007-BP-25152BP

PATIENT

DRUGS (1)
  1. MIRAPEX [Suspect]
     Indication: PARKINSON'S DISEASE
     Dates: start: 20030601, end: 20050301

REACTIONS (7)
  - DEEP VEIN THROMBOSIS [None]
  - GAMBLING [None]
  - INSOMNIA [None]
  - NECK PAIN [None]
  - OEDEMA PERIPHERAL [None]
  - OVERDOSE [None]
  - SUICIDE ATTEMPT [None]
